FAERS Safety Report 12004165 (Version 2)
Quarter: 2016Q1

REPORT INFORMATION
  Report Type: Other
  Country: US (occurrence: US)
  Receive Date: 20160204
  Receipt Date: 20160325
  Transmission Date: 20160526
  Serious: Yes (Hospitalization, Other)
  Sender: FDA-Public Use
  Company Number: US-TARO-2015TAR00803

PATIENT
  Age: 81 Year
  Sex: Female
  Weight: 73.47 kg

DRUGS (8)
  1. UNSPECIFIED STOOL SOFTENER [Concomitant]
  2. FISH OIL [Concomitant]
     Active Substance: FISH OIL
  3. WARFARIN SODIUM TABLETS USP 5MG [Suspect]
     Active Substance: WARFARIN SODIUM
     Dosage: UNK
     Route: 048
     Dates: end: 2014
  4. CALCIUM AND VITAMIN D [Concomitant]
     Active Substance: CALCIUM\VITAMIN D
  5. WARFARIN SODIUM TABLETS USP 5MG [Suspect]
     Active Substance: WARFARIN SODIUM
     Indication: PULMONARY EMBOLISM
     Dosage: 1 TABLETS, 1X/DAY
     Route: 048
     Dates: start: 20141020
  6. ATORVASTATIN [Concomitant]
     Active Substance: ATORVASTATIN
     Dosage: 20 MG, UNK
  7. WARFARIN SODIUM TABLETS USP 1MG [Suspect]
     Active Substance: WARFARIN SODIUM
     Indication: PULMONARY EMBOLISM
     Dosage: 5 MG, 1X/DAY
     Route: 048
     Dates: start: 20141016, end: 20141020
  8. XARELTO [Concomitant]
     Active Substance: RIVAROXABAN

REACTIONS (8)
  - Dyspnoea [Recovered/Resolved]
  - Chest pain [Recovered/Resolved]
  - Pulmonary embolism [Recovering/Resolving]
  - International normalised ratio decreased [Recovered/Resolved]
  - Acute respiratory failure [Recovering/Resolving]
  - Hypoxia [Unknown]
  - Respiratory acidosis [Unknown]
  - Hyperglycaemia [Unknown]

NARRATIVE: CASE EVENT DATE: 201410
